FAERS Safety Report 17200310 (Version 1)
Quarter: 2019Q4

REPORT INFORMATION
  Report Type: Spontaneous
  Country: FR (occurrence: FR)
  Receive Date: 20191226
  Receipt Date: 20191226
  Transmission Date: 20200122
  Serious: Yes (Hospitalization)
  Sender: FDA-Public Use
  Company Number: FR-TEVA-2019-FR-1158459

PATIENT
  Age: 88 Year
  Sex: Female

DRUGS (2)
  1. AMOXICILLINE [Suspect]
     Active Substance: AMOXICILLIN
     Indication: POST PROCEDURAL INFECTION
     Dosage: 9 GRAM PER DAY
     Route: 048
     Dates: start: 20180824, end: 201809
  2. AMOXICILLINE [Suspect]
     Active Substance: AMOXICILLIN
     Indication: POST PROCEDURAL INFECTION
     Dosage: 12 GRAM PER DAY
     Route: 042
     Dates: start: 20180802, end: 20180823

REACTIONS (2)
  - Acute kidney injury [Recovered/Resolved]
  - Crystalluria [Recovered/Resolved]

NARRATIVE: CASE EVENT DATE: 201809
